FAERS Safety Report 4356164-1 (Version None)
Quarter: 2004Q2

REPORT INFORMATION
  Report Type: 
  Country: None (occurrence: None)
  Receive Date: 20040506
  Receipt Date: 20040420
  Transmission Date: 20050107
  Serious: Yes (Hospitalization)
  Sender: FDA-Public Use
  Company Number: DSA_24132_2004

PATIENT
  Age: 77 Year
  Sex: Male

DRUGS (1)
  1. DICLOFENAC [Suspect]
     Indication: BACK PAIN
     Dosage: 50 MG TID

REACTIONS (14)
  - ANAEMIA HAEMOLYTIC AUTOIMMUNE [None]
  - ANTIBODY TEST POSITIVE [None]
  - BONE MARROW DISORDER [None]
  - CHOLELITHIASIS [None]
  - CONFUSIONAL STATE [None]
  - DIARRHOEA [None]
  - HAEMODIALYSIS [None]
  - HEART RATE INCREASED [None]
  - HEPATOSPLENOMEGALY [None]
  - NAUSEA [None]
  - OLIGURIA [None]
  - PLATELET COUNT DECREASED [None]
  - RENAL FAILURE [None]
  - VOMITING [None]
